FAERS Safety Report 9007338 (Version 2)
Quarter: 2014Q2

REPORT INFORMATION
  Report Type: Report from Study
  Country: BD (occurrence: BD)
  Receive Date: 20130110
  Receipt Date: 20140611
  Transmission Date: 20141212
  Serious: Yes (Death, Other)
  Sender: FDA-Public Use
  Company Number: PHHY2013BD002280

PATIENT
  Age: 60 Year
  Sex: Male

DRUGS (2)
  1. EXELON PATCH [Suspect]
     Indication: DEMENTIA
     Dosage: 9.5 MG/24 HOUR, PATCH 10
     Route: 062
     Dates: start: 201206, end: 201210
  2. RIVAMER [Concomitant]
     Indication: DEMENTIA
     Dosage: 4.5 MG, DAILY
     Route: 048
     Dates: start: 201211

REACTIONS (3)
  - Cerebrovascular accident [Fatal]
  - Cerebral haemorrhage [Not Recovered/Not Resolved]
  - General physical condition abnormal [Unknown]
